FAERS Safety Report 18435974 (Version 1)
Quarter: 2020Q4

REPORT INFORMATION
  Report Type: Spontaneous
  Country: US (occurrence: US)
  Receive Date: 20201028
  Receipt Date: 20201028
  Transmission Date: 20210114
  Serious: Yes (Hospitalization)
  Sender: FDA-Public Use
  Company Number: US-TEVA-2020-US-1842306

PATIENT
  Age: 14 Year
  Sex: Male

DRUGS (1)
  1. PROAIR RESPICLICK [Suspect]
     Active Substance: ALBUTEROL SULFATE
     Route: 065

REACTIONS (5)
  - Heart rate increased [Unknown]
  - Angina pectoris [Unknown]
  - Chest pain [Unknown]
  - Tremor [Unknown]
  - Back pain [Unknown]
